FAERS Safety Report 4701386-0 (Version None)
Quarter: 2005Q2

REPORT INFORMATION
  Report Type: 
  Country: None (occurrence: None)
  Receive Date: 20050624
  Receipt Date: 20050329
  Transmission Date: 20051028
  Serious: No
  Sender: FDA-Public Use
  Company Number: 2005BI006727

PATIENT
  Age: 46 Year
  Sex: Male

DRUGS (1)
  1. NATALIZUMAB [Suspect]
     Indication: MULTIPLE SCLEROSIS
     Dosage: IV
     Route: 042
     Dates: start: 20050201, end: 20050201

REACTIONS (4)
  - ACNE [None]
  - APHTHOUS STOMATITIS [None]
  - MIGRAINE [None]
  - VISION BLURRED [None]
